FAERS Safety Report 5377455-1 (Version None)
Quarter: 2007Q3

REPORT INFORMATION
  Report Type: 
  Country: None (occurrence: None)
  Receive Date: 20070703
  Receipt Date: 20070625
  Transmission Date: 20080115
  Serious: Yes (Other)
  Sender: FDA-Public Use
  Company Number: US-AMGEN-US226207

PATIENT
  Sex: Male
  Weight: 34.3 kg

DRUGS (1)
  1. ARANESP [Suspect]
     Indication: ANAEMIA
     Route: 058
     Dates: start: 20050929, end: 20070501

REACTIONS (5)
  - BONE MARROW FAILURE [None]
  - OCULAR ICTERUS [None]
  - PANCYTOPENIA [None]
  - THERAPEUTIC RESPONSE DECREASED [None]
  - URINE COPPER INCREASED [None]
